FAERS Safety Report 9032475 (Version 1)
Quarter: 2013Q1

REPORT INFORMATION
  Report Type: Spontaneous
  Country: AU (occurrence: AU)
  Receive Date: 20130125
  Receipt Date: 20130125
  Transmission Date: 20140127
  Serious: Yes (Death, Hospitalization)
  Sender: FDA-Public Use
  Company Number: AU-ASTRAZENECA-2013SE04570

PATIENT
  Age: 84 Year
  Sex: Male

DRUGS (11)
  1. NEXIUM [Suspect]
     Route: 048
  2. DITHIAZIDE [Suspect]
  3. MEGAFOL [Suspect]
  4. FLOMAXTRA [Suspect]
  5. LASIX [Suspect]
  6. OLMETEC [Suspect]
  7. OROXINE [Suspect]
  8. PRADAXA [Suspect]
  9. SERETIDE MDI [Suspect]
     Dosage: 125/25 MDI
  10. SPIRIVA [Suspect]
  11. ZYLOPRIM [Suspect]

REACTIONS (1)
  - Cardiac failure [Fatal]
